FAERS Safety Report 5610197-3 (Version None)
Quarter: 2008Q1

REPORT INFORMATION
  Report Type: 
  Country: None (occurrence: None)
  Receive Date: 20080131
  Receipt Date: 20080121
  Transmission Date: 20080703
  Serious: Yes (Other)
  Sender: FDA-Public Use
  Company Number: NZ-PFIZER INC-2008006953

PATIENT
  Sex: Male

DRUGS (2)
  1. VIAGRA [Suspect]
  2. PREDNISONE TAB [Concomitant]

REACTIONS (3)
  - LABILE HYPERTENSION [None]
  - OPTIC ISCHAEMIC NEUROPATHY [None]
  - PAPILLOEDEMA [None]
